FAERS Safety Report 10995616 (Version 2)
Quarter: 2015Q3

REPORT INFORMATION
  Report Type: Report from Study
  Country: US (occurrence: US)
  Receive Date: 20150407
  Receipt Date: 20150716
  Transmission Date: 20151125
  Serious: Yes (Hospitalization)
  Sender: FDA-Public Use
  Company Number: US-GILEAD-2015-0146952

PATIENT
  Age: 72 Year
  Sex: Male
  Weight: 89.8 kg

DRUGS (19)
  1. DUONEB [Concomitant]
     Active Substance: ALBUTEROL SULFATE\IPRATROPIUM BROMIDE
  2. DULERA [Concomitant]
     Active Substance: FORMOTEROL FUMARATE DIHYDRATE\MOMETASONE FUROATE
  3. ROBITUSSIN DM [Concomitant]
     Active Substance: DEXTROMETHORPHAN HYDROBROMIDE\GUAIFENESIN
  4. FIBER [Concomitant]
     Active Substance: PSYLLIUM HUSK
  5. PSYLLIUM                           /01328801/ [Concomitant]
     Active Substance: PLANTAGO SEED
  6. PROSCAR [Concomitant]
     Active Substance: FINASTERIDE
  7. DELTASONE                          /00016001/ [Concomitant]
  8. ALBUTEROL                          /00139501/ [Concomitant]
     Active Substance: ALBUTEROL
  9. NEXIUM [Concomitant]
     Active Substance: ESOMEPRAZOLE MAGNESIUM
  10. MAGNESIUM [Concomitant]
     Active Substance: MAGNESIUM
  11. LEVAQUIN [Concomitant]
     Active Substance: LEVOFLOXACIN
  12. IDELALISIB [Suspect]
     Active Substance: IDELALISIB
     Indication: HAEMATOLOGICAL MALIGNANCY
     Dosage: 150 MG, BID
     Route: 048
     Dates: start: 20131014, end: 20150326
  13. CARDIZEM [Concomitant]
     Active Substance: DILTIAZEM HYDROCHLORIDE
  14. MEVACOR [Concomitant]
     Active Substance: LOVASTATIN
  15. FLOMAX [Concomitant]
     Active Substance: TAMSULOSIN HYDROCHLORIDE
  16. SPIRIVA [Concomitant]
     Active Substance: TIOTROPIUM BROMIDE MONOHYDRATE
  17. VITAMIN D3 BON [Concomitant]
  18. CALCIUM MAGNESIUM                  /00591201/ [Concomitant]
  19. VALTREX [Concomitant]
     Active Substance: VALACYCLOVIR HYDROCHLORIDE

REACTIONS (1)
  - Chronic obstructive pulmonary disease [Recovered/Resolved with Sequelae]

NARRATIVE: CASE EVENT DATE: 20150326
